FAERS Safety Report 4545299-6 (Version None)
Quarter: 2005Q1

REPORT INFORMATION
  Report Type: 
  Country: None (occurrence: None)
  Receive Date: 20050103
  Receipt Date: 20041223
  Transmission Date: 20050727
  Serious: Yes (Hospitalization)
  Sender: FDA-Public Use
  Company Number: HQWYE175623DEC04

PATIENT
  Age: 27 Year
  Sex: Female

DRUGS (1)
  1. LIBIAN-28 (LEVONORGESTREL/ETHINYL ESTRADIOL/INERT, TABLET LOT NO. : 33 [Suspect]
     Indication: ORAL CONTRACEPTION
     Dosage: 1 TABLET 1X PER 1 DAY
     Route: 048
     Dates: start: 20040620, end: 20041211

REACTIONS (6)
  - CERVICAL DYSPLASIA [None]
  - CERVIX CARCINOMA STAGE III [None]
  - DRUG INEFFECTIVE [None]
  - INTRA-UTERINE DEATH [None]
  - OLIGOHYDRAMNIOS [None]
  - PREGNANCY ON ORAL CONTRACEPTIVE [None]
